FAERS Safety Report 6385331-0 (Version None)
Quarter: 2009Q4

REPORT INFORMATION
  Report Type: 
  Country: None (occurrence: None)
  Receive Date: 20091002
  Receipt Date: 20080822
  Transmission Date: 20100525
  Serious: No
  Sender: FDA-Public Use
  Company Number: US-ASTRAZENECA-2008UW17189

PATIENT
  Sex: Female
  Weight: 81.6 kg

DRUGS (3)
  1. ARIMIDEX [Suspect]
     Indication: BREAST CANCER
     Route: 048
  2. ASPIRIN [Concomitant]
  3. VITAMIN [Concomitant]

REACTIONS (7)
  - ALOPECIA [None]
  - AMNESIA [None]
  - ARTHRALGIA [None]
  - COUGH [None]
  - JOINT SWELLING [None]
  - MOBILITY DECREASED [None]
  - MYALGIA [None]
